FAERS Safety Report 9870214 (Version 1)
Quarter: 2014Q1

REPORT INFORMATION
  Report Type: Spontaneous
  Country: US (occurrence: None)
  Receive Date: 20140204
  Receipt Date: 20140204
  Transmission Date: 20141002
  Serious: Yes (Disabling, Other)
  Sender: FDA-Public Use
  Company Number: None

PATIENT
  Age: 60 Year
  Sex: Female
  Weight: 68.04 kg

DRUGS (1)
  1. SEPTOCAINE [Suspect]
     Indication: TOOTH EXTRACTION
     Dosage: -ADMINISTERED BY DENTIST-TOLD ME IT WAS- SEPTOCAINE ?2 INJECTIONS EA VISIT?INJECTION BY DENTIST

REACTIONS (3)
  - Sneezing [None]
  - Unevaluable event [None]
  - Swelling face [None]
